FAERS Safety Report 23816324 (Version 2)
Quarter: 2024Q2

REPORT INFORMATION
  Report Type: Spontaneous
  Country: DE (occurrence: None)
  Receive Date: 20240503
  Receipt Date: 20240606
  Transmission Date: 20240715
  Serious: Yes (Other)
  Sender: FDA-Public Use
  Company Number: 2024A101452

PATIENT
  Age: 57 Year
  Sex: Female

DRUGS (5)
  1. LYNPARZA [Interacting]
     Active Substance: OLAPARIB
     Indication: Ovarian cancer
     Route: 048
  2. CHOLECALCIFEROL [Interacting]
     Active Substance: CHOLECALCIFEROL
     Indication: Osteoporosis prophylaxis
     Dosage: 20000 IU ONCE A WEEK
  3. CHOLECALCIFEROL [Interacting]
     Active Substance: CHOLECALCIFEROL
     Indication: Osteoporosis prophylaxis
     Dosage: 2000 IU ONCE/SINGLE ADMINISTRATION
  4. MAGNESIUM [Concomitant]
     Active Substance: MAGNESIUM
  5. AMINOPHYLLINE\QUININE SULFATE [Concomitant]
     Active Substance: AMINOPHYLLINE\QUININE SULFATE

REACTIONS (12)
  - Nephrolithiasis [Unknown]
  - Thrombosis [Unknown]
  - Drug interaction [Unknown]
  - Osteoporosis [Unknown]
  - Bone density decreased [Unknown]
  - Tremor [Unknown]
  - Myalgia [Unknown]
  - Blood calcium increased [Unknown]
  - Arthralgia [Unknown]
  - Bone pain [Unknown]
  - Nausea [Unknown]
  - Muscle spasms [Recovered/Resolved]
